FAERS Safety Report 6229958-5 (Version None)
Quarter: 2009Q2

REPORT INFORMATION
  Report Type: 
  Country: None (occurrence: None)
  Receive Date: 20090615
  Receipt Date: 20090608
  Transmission Date: 20091009
  Serious: No
  Sender: FDA-Public Use
  Company Number: US-B.I. PHARMACEUTICALS,INC./RIDGEFIELD-2009-BP-07147BP

PATIENT
  Sex: Female

DRUGS (6)
  1. COMBIVENT [Suspect]
     Indication: CHRONIC OBSTRUCTIVE PULMONARY DISEASE
     Dosage: 6PUF
     Route: 055
     Dates: start: 20020101
  2. COMBIVENT [Suspect]
     Indication: MULTIPLE ALLERGIES
  3. ADVAIR HFA [Suspect]
     Indication: CHRONIC OBSTRUCTIVE PULMONARY DISEASE
     Route: 055
     Dates: start: 20020101
  4. ZANTAC [Concomitant]
     Indication: GASTROOESOPHAGEAL REFLUX DISEASE
     Dosage: 300MG
     Route: 048
  5. CHLOROZEPATE [Concomitant]
     Indication: ANXIETY
     Route: 048
  6. TRICOR [Concomitant]
     Indication: BLOOD CHOLESTEROL INCREASED
     Route: 048

REACTIONS (5)
  - GINGIVAL ATROPHY [None]
  - GINGIVAL INFECTION [None]
  - GINGIVAL SWELLING [None]
  - TEETH BRITTLE [None]
  - URINARY TRACT INFECTION [None]
